FAERS Safety Report 15803771 (Version 2)
Quarter: 2019Q1

REPORT INFORMATION
  Report Type: Spontaneous
  Country: JP (occurrence: JP)
  Receive Date: 20190109
  Receipt Date: 20190219
  Transmission Date: 20190417
  Serious: Yes (Death, Other)
  Sender: FDA-Public Use
  Company Number: JP-PFIZER INC-2018535376

PATIENT
  Age: 61 Year
  Sex: Male

DRUGS (2)
  1. CAMPTO [Suspect]
     Active Substance: IRINOTECAN
     Indication: COLON CANCER
     Dosage: 90 MG/M2, CYCLIC (1X/DAY, TOTAL OF 1 CYCLE)
     Route: 041
     Dates: start: 20181206, end: 20181206
  2. DECADRON [DEXAMETHASONE SODIUM PHOSPHATE] [Concomitant]
     Dosage: UNK
     Route: 048
     Dates: start: 20181206, end: 20181206

REACTIONS (1)
  - Interstitial lung disease [Fatal]

NARRATIVE: CASE EVENT DATE: 20181221
